FAERS Safety Report 16475727 (Version 1)
Quarter: 2019Q2

REPORT INFORMATION
  Report Type: Spontaneous
  Country: CA (occurrence: CA)
  Receive Date: 20190625
  Receipt Date: 20190625
  Transmission Date: 20190711
  Serious: Yes (Other)
  Sender: FDA-Public Use
  Company Number: CA-SEPTODONT-201905301

PATIENT
  Sex: Female

DRUGS (1)
  1. BUPIVACAINE 0.5% AND EPINEPHRINE 1:200,000 [Suspect]
     Active Substance: BUPIVACAINE\EPINEPHRINE
     Indication: CAESAREAN SECTION
     Route: 039

REACTIONS (4)
  - Incorrect route of product administration [Unknown]
  - Off label use [Unknown]
  - Anaesthetic complication [Recovered/Resolved]
  - Therapeutic response shortened [Recovered/Resolved]
